FAERS Safety Report 18310818 (Version 4)
Quarter: 2022Q2

REPORT INFORMATION
  Report Type: Spontaneous
  Country: US (occurrence: US)
  Receive Date: 20200925
  Receipt Date: 20220519
  Transmission Date: 20220720
  Serious: Yes (Other)
  Sender: FDA-Public Use
  Company Number: US-SAARTEMIS-SAC202009210476

PATIENT
  Age: 56 Year
  Sex: Male

DRUGS (1)
  1. ZANTAC [Suspect]
     Active Substance: RANITIDINE HYDROCHLORIDE
     Indication: Dyspepsia
     Dosage: 150 MG, QW
     Route: 065
     Dates: start: 199001, end: 201101

REACTIONS (2)
  - Prostate cancer [Unknown]
  - Skin cancer [Unknown]

NARRATIVE: CASE EVENT DATE: 20110801
